FAERS Safety Report 25008413 (Version 2)
Quarter: 2025Q1

REPORT INFORMATION
  Report Type: Spontaneous
  Country: US (occurrence: US)
  Receive Date: 20250225
  Receipt Date: 20250320
  Transmission Date: 20250408
  Serious: Yes (Death, Other)
  Sender: AUROBINDO
  Company Number: US-AUROBINDO-AUR-APL-2025-009068

PATIENT
  Age: 40 Year
  Sex: Male
  Weight: 60 kg

DRUGS (6)
  1. CLOZAPINE [Suspect]
     Active Substance: CLOZAPINE
     Indication: Bipolar disorder
     Dosage: 6 DOSAGE FORM, TWO TIMES A DAY (6 PILLS IN THE MORNING  AND 6 PILLS IN THE EVENING)
     Route: 048
     Dates: start: 202409
  2. CLOZAPINE [Suspect]
     Active Substance: CLOZAPINE
     Indication: Schizophrenia
  3. Quser [Concomitant]
     Indication: Product used for unknown indication
     Route: 065
  4. OLANZAPINE [Concomitant]
     Active Substance: OLANZAPINE
     Indication: Product used for unknown indication
     Route: 065
  5. PAXIL [Concomitant]
     Active Substance: PAROXETINE HYDROCHLORIDE
     Indication: Product used for unknown indication
     Route: 065
  6. Montesin [Concomitant]
     Indication: Product used for unknown indication
     Route: 065

REACTIONS (1)
  - Death [Fatal]

NARRATIVE: CASE EVENT DATE: 20250202
